FAERS Safety Report 25817353 (Version 1)
Quarter: 2025Q3

REPORT INFORMATION
  Report Type: Spontaneous
  Country: US (occurrence: US)
  Receive Date: 20250918
  Receipt Date: 20250918
  Transmission Date: 20251021
  Serious: No
  Sender: LUPIN
  Company Number: US-LUPIN PHARMACEUTICALS INC.-2025-08198

PATIENT
  Age: 66 Year
  Sex: Female

DRUGS (1)
  1. PREDNISOLONE ACETATE [Suspect]
     Active Substance: PREDNISOLONE ACETATE
     Indication: Lens extraction
     Dosage: 1 DROP, TIM (FOR A MONTH)
     Dates: start: 20250820

REACTIONS (3)
  - Extra dose administered [Unknown]
  - Device leakage [Unknown]
  - No adverse event [Unknown]
